FAERS Safety Report 8518248-3 (Version None)
Quarter: 2012Q3

REPORT INFORMATION
  Report Type: 
  Country: None (occurrence: None)
  Receive Date: 20120712
  Receipt Date: 20120712
  Transmission Date: 20120928
  Serious: No
  Sender: FDA-Public Use
  Company Number: None

PATIENT
  Age: 63 Year
  Sex: Male
  Weight: 75 kg

DRUGS (2)
  1. LISINOPRIL AND HYDROCHLOROTHIAZIDE [Suspect]
     Dosage: 12.5MG/20MG EVERY DAY PO
     Route: 048
     Dates: start: 20111201, end: 20120615
  2. LEVOFLOXACIN [Suspect]
     Dosage: 500 MG EVERY DAY PO
     Route: 048
     Dates: start: 20120607, end: 20120612

REACTIONS (1)
  - RENAL FAILURE ACUTE [None]
